FAERS Safety Report 21771292 (Version 1)
Quarter: 2022Q4

REPORT INFORMATION
  Report Type: Spontaneous
  Country: JP (occurrence: JP)
  Receive Date: 20221223
  Receipt Date: 20221223
  Transmission Date: 20230113
  Serious: Yes (Death, Life-Threatening, Hospitalization, Other)
  Sender: FDA-Public Use
  Company Number: None

PATIENT
  Age: 79 Year
  Sex: Male
  Weight: 53.3 kg

DRUGS (7)
  1. ETOPOSIDE [Suspect]
     Active Substance: ETOPOSIDE
     Indication: Oesophageal carcinoma
     Dosage: 100 MILLIGRAM/SQ. METER, CYCLICAL
     Route: 065
     Dates: start: 20201208
  2. ETOPOSIDE [Suspect]
     Active Substance: ETOPOSIDE
     Indication: Neuroendocrine carcinoma of the oesophagus
     Dosage: UNK, DOSAGE WAS REDUCED TO 80%.
     Route: 065
     Dates: start: 202012
  3. CISPLATIN [Suspect]
     Active Substance: CISPLATIN
     Indication: Neuroendocrine carcinoma of the oesophagus
     Dosage: 80 MILLIGRAM/SQ. METER, CYCLICAL
     Route: 065
     Dates: start: 20201208
  4. CISPLATIN [Suspect]
     Active Substance: CISPLATIN
     Indication: Oesophageal carcinoma
     Dosage: UNK, DOSAGE WAS REDUCED TO 80%
     Route: 065
     Dates: start: 202012
  5. FUROSEMIDE [Suspect]
     Active Substance: FUROSEMIDE
     Indication: Weight increased
     Dosage: 20 MILLIGRAM, 2 TOTAL
     Route: 042
     Dates: start: 20201209
  6. FUROSEMIDE [Suspect]
     Active Substance: FUROSEMIDE
     Dosage: 40 MILLIGRAM, 1 TOTAL
     Route: 042
     Dates: start: 20201210
  7. FUROSEMIDE [Suspect]
     Active Substance: FUROSEMIDE
     Dosage: 20 MILLIGRAM, UNKNOWN
     Route: 048
     Dates: start: 20201211

REACTIONS (4)
  - Intestinal ischaemia [Fatal]
  - Gastrointestinal necrosis [Fatal]
  - Septic shock [Fatal]
  - Off label use [Unknown]

NARRATIVE: CASE EVENT DATE: 20201214
